FAERS Safety Report 14189429 (Version 1)
Quarter: 2017Q4

REPORT INFORMATION
  Report Type: Report from Study
  Country: US (occurrence: US)
  Receive Date: 20171115
  Receipt Date: 20171115
  Transmission Date: 20180321
  Serious: No
  Sender: FDA-Public Use
  Company Number: US-ROCHE-2019577

PATIENT
  Age: 53 Year
  Sex: Female

DRUGS (2)
  1. OCREVUS [Suspect]
     Active Substance: OCRELIZUMAB
     Indication: PRIMARY PROGRESSIVE MULTIPLE SCLEROSIS
     Dosage: ONGOING: UNKNOWN
     Route: 042
     Dates: start: 20170919
  2. MUCINEX [Concomitant]
     Active Substance: GUAIFENESIN
     Dosage: FOR A MONTH ;ONGOING: UNKNOWN
     Route: 065

REACTIONS (6)
  - Nasal congestion [Not Recovered/Not Resolved]
  - Fatigue [Unknown]
  - Upper respiratory tract infection [Not Recovered/Not Resolved]
  - Cough [Unknown]
  - Malaise [Not Recovered/Not Resolved]
  - Secretion discharge [Unknown]

NARRATIVE: CASE EVENT DATE: 20171017
